FAERS Safety Report 17653386 (Version 1)
Quarter: 2020Q2

REPORT INFORMATION
  Report Type: Spontaneous
  Country: None (occurrence: US)
  Receive Date: 20200409
  Receipt Date: 20200409
  Transmission Date: 20200713
  Serious: No
  Sender: FDA-Public Use
  Company Number: US-AMPHASTAR PHARMACEUTICALS, INC.-2082596

PATIENT
  Age: 56 Year
  Sex: Female
  Weight: 55.91 kg

DRUGS (18)
  1. MACROBID (GENERIC) [Concomitant]
     Dates: start: 20191104
  2. TYLENOL [Concomitant]
     Active Substance: ACETAMINOPHEN
  3. TIKOSYN [Concomitant]
     Active Substance: DOFETILIDE
  4. BUPROPION. [Concomitant]
     Active Substance: BUPROPION
  5. CARVEDILOL. [Concomitant]
     Active Substance: CARVEDILOL
  6. PRAVASTATIN. [Concomitant]
     Active Substance: PRAVASTATIN
  7. TRAZODONE [Concomitant]
     Active Substance: TRAZODONE HYDROCHLORIDE
  8. PROAIR ALBUTEROL INHALER [Concomitant]
  9. ESOMEPRAZOLE. [Concomitant]
     Active Substance: ESOMEPRAZOLE MAGNESIUM
  10. RANITIDINE. [Concomitant]
     Active Substance: RANITIDINE
  11. MULTIVITAMIN [Concomitant]
     Active Substance: VITAMINS
  12. ADVAIR DISKUS [Concomitant]
     Active Substance: FLUTICASONE PROPIONATE\SALMETEROL XINAFOATE
  13. CETIRIZINE [Concomitant]
     Active Substance: CETIRIZINE HYDROCHLORIDE
  14. ACETAMINOPHEN. [Concomitant]
     Active Substance: ACETAMINOPHEN
  15. MONTELUKAST [Concomitant]
     Active Substance: MONTELUKAST SODIUM
  16. ENOXAPARIN SODIUM. [Suspect]
     Active Substance: ENOXAPARIN SODIUM
     Indication: ANTIPHOSPHOLIPID ANTIBODIES
     Route: 058
     Dates: start: 201808, end: 20190531
  17. RESTASIS [Concomitant]
     Active Substance: CYCLOSPORINE
  18. FLEXERIL [Concomitant]
     Active Substance: CYCLOBENZAPRINE HYDROCHLORIDE

REACTIONS (4)
  - Joint swelling [Recovered/Resolved]
  - Rash [Recovered/Resolved]
  - Breast haematoma [Recovered/Resolved]
  - Injection site bruising [Recovered/Resolved]

NARRATIVE: CASE EVENT DATE: 201808
